FAERS Safety Report 8985476 (Version 1)
Quarter: 2012Q4

REPORT INFORMATION
  Report Type: 
  Country: US (occurrence: US)
  Receive Date: 20121226
  Receipt Date: 20121226
  Transmission Date: 20130627
  Serious: Yes (Death, Other)
  Sender: FDA-Public Use
  Company Number: US-PFIZER INC-2012323455

PATIENT
  Age: 36 Year
  Sex: Male

DRUGS (1)
  1. TYGACIL [Suspect]
     Dosage: UNK

REACTIONS (3)
  - Metabolic acidosis [Fatal]
  - Pseudomonas infection [Unknown]
  - Toxic epidermal necrolysis [Unknown]
